FAERS Safety Report 14329919 (Version 1)
Quarter: 2017Q4

REPORT INFORMATION
  Report Type: Spontaneous
  Country: US (occurrence: US)
  Receive Date: 20171227
  Receipt Date: 20171227
  Transmission Date: 20180321
  Serious: Yes (Other)
  Sender: FDA-Public Use
  Company Number: US-PROCTER_AND_GAMBLE-GS17141356

PATIENT
  Age: 69 Year
  Sex: Female

DRUGS (5)
  1. SECRET ANTIPERSPIRANT NOS [Suspect]
     Active Substance: ALUMINUM CHLOROHYDRATE OR ALUMINUM ZIRCONIUM TETRACHLOROHYDREX GLY
     Dosage: 20 - 30 YEARS OF DAILY OR TWICE A DAY; APPLIED TO OUTER UPPER QUADRANT OF BREAST AREA
     Route: 061
     Dates: end: 201609
  2. SECRET ANTIPERSPIRANT NOS [Suspect]
     Active Substance: ALUMINUM CHLOROHYDRATE OR ALUMINUM ZIRCONIUM TETRACHLOROHYDREX GLY
     Dosage: 20 - 30 YEARS OF DAILY OR TWICE A DAY; APPLIED TO OUTER UPPER QUADRANT OF BREAST AREA
     Route: 061
     Dates: start: 1980, end: 201609
  3. SECRET ANTIPERSPIRANT NOS [Suspect]
     Active Substance: ALUMINUM CHLOROHYDRATE OR ALUMINUM ZIRCONIUM TETRACHLOROHYDREX GLY
     Dosage: 20 - 30 YEARS OF DAILY OR TWICE A DAY; APPLIED TO OUTER UPPER QUADRANT OF BREAST AREA
     Route: 061
     Dates: end: 201609
  4. SECRET OUTLAST AND OLAY SMOOTH COMPLETELY CLEAN [Suspect]
     Active Substance: ALUMINUM ZIRCONIUM TRICHLOROHYDREX GLY
     Dosage: 20 - 30 YEARS OF DAILY OR TWICE A DAY; APPLIED TO OUTER UPPER QUADRANT OF BREAST AREA
     Route: 061
     Dates: end: 201609
  5. SECRET ANTIPERSPIRANT NOS [Suspect]
     Active Substance: ALUMINUM CHLOROHYDRATE OR ALUMINUM ZIRCONIUM TETRACHLOROHYDREX GLY
     Dosage: 20 - 30 YEARS OF DAILY OR TWICE A DAY; APPLIED TO OUTER UPPER QUADRANT OF BREAST AREA
     Route: 061
     Dates: end: 201609

REACTIONS (3)
  - Weight decreased [Not Recovered/Not Resolved]
  - Cachexia [Unknown]
  - Apocrine breast carcinoma [Unknown]
